FAERS Safety Report 14309612 (Version 14)
Quarter: 2018Q3

REPORT INFORMATION
  Report Type: Spontaneous
  Country: CA (occurrence: CA)
  Receive Date: 20171220
  Receipt Date: 20180928
  Transmission Date: 20181010
  Serious: Yes (Other)
  Sender: FDA-Public Use
  Company Number: CA-CELLTRION INC.-2017CA013234

PATIENT

DRUGS (19)
  1. INFLECTRA [Suspect]
     Active Substance: INFLIXIMAB-DYYB
     Dosage: 10 MG/KG (1090MG) EVERY 6 WEEKS
     Route: 065
     Dates: start: 20171220
  2. PREDNISONE. [Concomitant]
     Active Substance: PREDNISONE
     Dosage: 5 UNK
     Route: 065
  3. PREDNISONE. [Concomitant]
     Active Substance: PREDNISONE
     Dosage: 5 MG, DAILY
  4. INFLECTRA [Suspect]
     Active Substance: INFLIXIMAB-DYYB
     Dosage: 10 MG/KG, (1090 MG) CYCLIC, EVERY 6 WEEKS;
     Dates: start: 20180716
  5. MEZAVANT [Concomitant]
     Active Substance: MESALAMINE
     Dosage: 3.6 G, DAILY
     Route: 065
     Dates: start: 2012
  6. PREDNISONE. [Concomitant]
     Active Substance: PREDNISONE
     Dosage: 40 MG, DAILY
     Route: 065
     Dates: start: 20170416
  7. HYDROCORTISONE. [Concomitant]
     Active Substance: HYDROCORTISONE
     Dosage: UNK
     Dates: start: 20171122
  8. INFLECTRA [Suspect]
     Active Substance: INFLIXIMAB-DYYB
     Dosage: 575 MG, CYCLIC, 0, 2, 6 WEEKS, THEN 8 WEEKS
     Route: 042
     Dates: start: 20171012, end: 20171012
  9. INFLECTRA [Suspect]
     Active Substance: INFLIXIMAB-DYYB
     Dosage: 10 MG/KG (1090MG) EVERY 6 WEEKS
     Route: 065
     Dates: start: 20180214
  10. INFLECTRA [Suspect]
     Active Substance: INFLIXIMAB-DYYB
     Dosage: 10 MG/KG (1090MG) EVERY 6 WEEKS
     Route: 065
     Dates: start: 20180412
  11. HYDRALAZINE [Concomitant]
     Active Substance: HYDRALAZINE HYDROCHLORIDE
     Dosage: 10 MG, DAILY
     Route: 065
  12. INFLECTRA [Suspect]
     Active Substance: INFLIXIMAB-DYYB
     Dosage: 10 MG/KG (1090MG) EVERY 6 WEEKS
     Route: 065
     Dates: start: 20180117
  13. INFLECTRA [Suspect]
     Active Substance: INFLIXIMAB-DYYB
     Dosage: 10 MG/KG (1090MG) EVERY 6 WEEKS
     Route: 042
     Dates: start: 20180613
  14. AMLODIPINE BESILATE [Concomitant]
     Active Substance: AMLODIPINE BESYLATE
     Dosage: 10 MG, DAILY
     Route: 065
  15. CARVEDILOL. [Concomitant]
     Active Substance: CARVEDILOL
     Dosage: 6.25 MG, DAILY
     Route: 065
  16. INFLECTRA [Suspect]
     Active Substance: INFLIXIMAB-DYYB
     Dosage: 10 MG/KG (1090MG) EVERY 6 WEEKS
     Route: 065
     Dates: start: 20180314
  17. INFLECTRA [Suspect]
     Active Substance: INFLIXIMAB-DYYB
     Dosage: 10 MG/KG (1090MG) EVERY 6 WEEKS
     Route: 042
     Dates: start: 20180514
  18. INFLECTRA [Suspect]
     Active Substance: INFLIXIMAB-DYYB
     Indication: COLITIS ULCERATIVE
     Dosage: 575 MG, CYCLIC, 0, 2, 6 WEEKS, THEN 8 WEEKS
     Route: 042
     Dates: start: 20170628, end: 20171122
  19. INFLECTRA [Suspect]
     Active Substance: INFLIXIMAB-DYYB
     Dosage: 10 MG/KG, (1090 MG) CYCLIC, EVERY 6 WEEKS;
     Dates: start: 20180815

REACTIONS (8)
  - Blood pressure fluctuation [Unknown]
  - Product use issue [Unknown]
  - Blood pressure increased [Unknown]
  - Tooth abscess [Not Recovered/Not Resolved]
  - Flushing [Recovered/Resolved]
  - Drug effect incomplete [Recovered/Resolved]
  - Condition aggravated [Unknown]
  - Underdose [Unknown]

NARRATIVE: CASE EVENT DATE: 20171012
